FAERS Safety Report 24948910 (Version 2)
Quarter: 2025Q1

REPORT INFORMATION
  Report Type: Spontaneous
  Country: BE (occurrence: BE)
  Receive Date: 20250210
  Receipt Date: 20250212
  Transmission Date: 20250409
  Serious: Yes (Death, Hospitalization, Other)
  Sender: PFIZER
  Company Number: BE-PFIZER INC-PV202500015188

PATIENT
  Age: 94 Year
  Sex: Male

DRUGS (2)
  1. VYNDAQEL [Suspect]
     Active Substance: TAFAMIDIS MEGLUMINE
     Indication: Cardiac amyloidosis
     Dates: start: 202008
  2. ASPIRIN [Concomitant]
     Active Substance: ASPIRIN
     Dates: end: 2024

REACTIONS (7)
  - Influenza [Fatal]
  - Intestinal haemorrhage [Unknown]
  - Atrial fibrillation [Unknown]
  - Cerebral thrombosis [Unknown]
  - Pneumonia influenzal [Unknown]
  - Cystitis bacterial [Unknown]
  - Respiratory tract infection [Unknown]

NARRATIVE: CASE EVENT DATE: 20240101
